FAERS Safety Report 13533139 (Version 1)
Quarter: 2017Q2

REPORT INFORMATION
  Report Type: Spontaneous
  Country: RU (occurrence: RU)
  Receive Date: 20170510
  Receipt Date: 20170510
  Transmission Date: 20170830
  Serious: Yes (Death)
  Sender: FDA-Public Use
  Company Number: RU-JNJFOC-20170508863

PATIENT
  Age: 91 Year
  Sex: Female

DRUGS (1)
  1. XARELTO [Suspect]
     Active Substance: RIVAROXABAN
     Indication: PRODUCT USED FOR UNKNOWN INDICATION
     Route: 048
     Dates: start: 20170425, end: 20170501

REACTIONS (4)
  - Cardiac arrest [Fatal]
  - Respiratory arrest [Fatal]
  - Acute respiratory failure [Fatal]
  - Inappropriate prescribing [Unknown]
